FAERS Safety Report 10419271 (Version 1)
Quarter: 2014Q3

REPORT INFORMATION
  Report Type: Spontaneous
  Country: US (occurrence: None)
  Receive Date: 20140701
  Receipt Date: 20140701
  Transmission Date: 20150326
  Serious: No
  Sender: FDA-Public Use
  Company Number: 1000067676

PATIENT
  Age: 37 Year
  Sex: Female

DRUGS (3)
  1. MVI (VITAMINS NOS) [Concomitant]
  2. PRILOSEC (OMEPRAZOLE) [Suspect]
     Active Substance: OMEPRAZOLE MAGNESIUM
  3. LINZESS [Suspect]
     Active Substance: LINACLOTIDE

REACTIONS (2)
  - Hunger [None]
  - Weight increased [None]
